FAERS Safety Report 17663270 (Version 1)
Quarter: 2020Q2

REPORT INFORMATION
  Report Type: Spontaneous
  Country: FR (occurrence: FR)
  Receive Date: 20200414
  Receipt Date: 20200414
  Transmission Date: 20200713
  Serious: Yes (Hospitalization)
  Sender: FDA-Public Use
  Company Number: FR-AUROBINDO-AUR-APL-2020-018127

PATIENT
  Age: 71 Year
  Sex: Male

DRUGS (1)
  1. SERTRALINE [Suspect]
     Active Substance: SERTRALINE HYDROCHLORIDE
     Indication: MAJOR DEPRESSION
     Dosage: 50 MILLIGRAM, DAILY
     Route: 065
     Dates: end: 20171109

REACTIONS (7)
  - Anaemia [Unknown]
  - Epistaxis [Recovered/Resolved]
  - Platelet dysfunction [Recovered/Resolved]
  - Nasal cavity packing [Recovered/Resolved]
  - Arterial ligation [Recovered/Resolved]
  - Platelet transfusion [Recovered/Resolved]
  - Packed red blood cell transfusion [Recovered/Resolved]

NARRATIVE: CASE EVENT DATE: 201512
